FAERS Safety Report 7833740-2 (Version None)
Quarter: 2011Q4

REPORT INFORMATION
  Report Type: 
  Country: None (occurrence: None)
  Receive Date: 20111024
  Receipt Date: 20111012
  Transmission Date: 20120403
  Serious: Yes (Life-Threatening)
  Sender: FDA-Public Use
  Company Number: JP-ACTELION-A-CH2011-55572

PATIENT
  Sex: Male
  Weight: 5 kg

DRUGS (9)
  1. TRACLEER [Interacting]
     Dosage: 2.5 MG, BID
     Route: 048
     Dates: start: 20110126, end: 20110202
  2. SPIRONOLACTONE [Concomitant]
  3. TRACLEER [Interacting]
     Indication: PULMONARY ARTERIAL HYPERTENSION
     Dosage: 5.2 MG, BID
     Route: 048
     Dates: start: 20110203, end: 20110207
  4. PIMOBENDAN [Concomitant]
  5. TORSEMIDE [Concomitant]
  6. ASPARTATE POTASSIUM [Concomitant]
  7. SILDENAFIL CITRATE [Suspect]
     Dosage: UNK
     Dates: start: 20110116, end: 20110207
  8. TRICHLORMETHIAZIDE [Suspect]
     Dosage: UNK
     Dates: start: 20110119, end: 20110204
  9. OXYGEN [Concomitant]

REACTIONS (4)
  - DECREASED VENTRICULAR PRELOAD [None]
  - DRUG INTERACTION [None]
  - RENAL FAILURE ACUTE [None]
  - CARDIOVASCULAR DISORDER [None]
